FAERS Safety Report 4976114-4 (Version None)
Quarter: 2006Q2

REPORT INFORMATION
  Report Type: 
  Country: None (occurrence: None)
  Receive Date: 20060411
  Receipt Date: 20060328
  Transmission Date: 20061013
  Serious: Yes (Hospitalization, Disabling)
  Sender: FDA-Public Use
  Company Number: 2006S1002704

PATIENT
  Sex: Male

DRUGS (1)
  1. FENTANYL TRANSDERMAL SYSTEM [Suspect]
     Dosage: TRANS
     Route: 062
     Dates: start: 20050303

REACTIONS (19)
  - APPLICATION SITE ERYTHEMA [None]
  - BRAIN DAMAGE [None]
  - COGNITIVE DISORDER [None]
  - DEHYDRATION [None]
  - DISCOMFORT [None]
  - DYSARTHRIA [None]
  - DYSPNOEA [None]
  - ERYTHEMA [None]
  - HYPOVOLAEMIA [None]
  - LOSS OF CONSCIOUSNESS [None]
  - NAUSEA [None]
  - OVERDOSE [None]
  - PNEUMONIA ASPIRATION [None]
  - RENAL FAILURE [None]
  - RENAL FAILURE ACUTE [None]
  - RESPIRATORY FAILURE [None]
  - RHABDOMYOLYSIS [None]
  - TROPONIN INCREASED [None]
  - VOMITING [None]
